FAERS Safety Report 10901833 (Version 1)
Quarter: 2015Q1

REPORT INFORMATION
  Report Type: Spontaneous
  Country: US (occurrence: None)
  Receive Date: 20150303
  Receipt Date: 20150303
  Transmission Date: 20150721
  Serious: No
  Sender: FDA-Public Use
  Company Number: None

PATIENT
  Age: 56 Year
  Sex: Female
  Weight: 63.5 kg

DRUGS (2)
  1. CLONAZEPAM. [Suspect]
     Active Substance: CLONAZEPAM
     Indication: SEIZURE
     Dosage: 0.5 MG 8 TABLETS DAILY AS NEEDED ONCE DAILY TAKEN UNDER THE TONGUE
     Route: 060
     Dates: start: 20150228, end: 20150301
  2. SYNTHROID [Concomitant]
     Active Substance: LEVOTHYROXINE SODIUM

REACTIONS (6)
  - Product physical issue [None]
  - Nausea [None]
  - Burning sensation [None]
  - Product taste abnormal [None]
  - Paraesthesia [None]
  - Product quality issue [None]

NARRATIVE: CASE EVENT DATE: 20150228
